FAERS Safety Report 9636277 (Version 3)
Quarter: 2013Q4

REPORT INFORMATION
  Report Type: Spontaneous
  Country: GB (occurrence: GB)
  Receive Date: 20131021
  Receipt Date: 20131101
  Transmission Date: 20140711
  Serious: Yes (Other)
  Sender: FDA-Public Use
  Company Number: PHFR2013GB004992

PATIENT
  Age: 22 Year
  Sex: Female
  Weight: 114 kg

DRUGS (3)
  1. CLOZARIL [Suspect]
     Indication: SCHIZOPHRENIA
     Dosage: 400 MG, DAILY
     Route: 048
     Dates: start: 20130717, end: 20130830
  2. CITALOPRAM [Concomitant]
     Indication: DEPRESSED MOOD
     Dosage: 40 MG, DAILY
     Route: 048
  3. HYOSCINE HYDROBROMIDE [Concomitant]
     Indication: SALIVARY HYPERSECRETION
     Dosage: 300 MG, DAILY
     Route: 048
     Dates: end: 20130830

REACTIONS (5)
  - Generalised oedema [Recovered/Resolved]
  - Cough [Recovering/Resolving]
  - Sputum discoloured [Recovered/Resolved]
  - Heart rate increased [Recovered/Resolved]
  - Weight increased [Recovered/Resolved]
